FAERS Safety Report 21881123 (Version 5)
Quarter: 2024Q4

REPORT INFORMATION
  Report Type: Spontaneous
  Country: IT (occurrence: IT)
  Receive Date: 20230118
  Receipt Date: 20241105
  Transmission Date: 20250115
  Serious: Yes (Other)
  Sender: CELLTRION
  Company Number: IT-CELLTRION INC.-2023IT000606

PATIENT

DRUGS (16)
  1. INFLIXIMAB [Suspect]
     Active Substance: INFLIXIMAB
     Indication: Psoriatic arthropathy
     Dosage: UNK
  2. INFLIXIMAB [Suspect]
     Active Substance: INFLIXIMAB
     Indication: Psoriasis
     Dosage: 5 MILLIGRAM/KILOGRAM
  3. USTEKINUMAB [Suspect]
     Active Substance: USTEKINUMAB
     Indication: Erythrodermic psoriasis
     Dosage: 90 MILLIGRAM
  4. METHOTREXATE [Suspect]
     Active Substance: METHOTREXATE
     Indication: Psoriatic arthropathy
     Dosage: 15 MILLIGRAM, QW
  5. CYCLOSPORINE [Suspect]
     Active Substance: CYCLOSPORINE
     Indication: Psoriatic arthropathy
     Dosage: 150-200 MG/QD
  6. CYCLOSPORINE [Suspect]
     Active Substance: CYCLOSPORINE
     Indication: Erythrodermic psoriasis
     Dosage: 150-200 MG/QD
  7. PREDNISONE [Suspect]
     Active Substance: PREDNISONE
     Indication: Erythrodermic psoriasis
     Dosage: 25 MILLIGRAM, QD
     Route: 048
  8. ADALIMUMAB [Suspect]
     Active Substance: ADALIMUMAB
     Indication: Psoriatic arthropathy
     Dosage: 40 MILLIGRAM, Q2W
     Route: 058
  9. ADALIMUMAB [Suspect]
     Active Substance: ADALIMUMAB
     Indication: Erythrodermic psoriasis
     Dosage: 40 MILLIGRAM, Q2W
  10. ACITRETIN [Suspect]
     Active Substance: ACITRETIN
     Indication: Erythrodermic psoriasis
     Dosage: 25 MILLIGRAM, EVERY 1 DAY (DAILY DOSE: 25.0 MG)
     Route: 065
  11. ETANERCEPT [Suspect]
     Active Substance: ETANERCEPT
     Indication: Erythrodermic psoriasis
     Dosage: 50 MILLIGRAM, 0.5 WEEK AS OFF LABEL REGIMEN
  12. ETANERCEPT [Suspect]
     Active Substance: ETANERCEPT
     Dosage: 50 MILLIGRAM, QW (50 MG, Q WEEK), (DAILY DOSE: 7.0 MG)
     Route: 065
  13. ETANERCEPT [Suspect]
     Active Substance: ETANERCEPT
     Dosage: 50 MG, EVERY 0.5 WEEK (DAILY DOSE: 7.0 MG)
     Route: 065
  14. ETANERCEPT [Suspect]
     Active Substance: ETANERCEPT
     Dosage: 50 MILLIGRAM, QW MAINTENANCE DOSE
  15. SECUKINUMAB [Concomitant]
     Active Substance: SECUKINUMAB
     Indication: Erythrodermic psoriasis
     Dosage: 300 MILLIGRAM
  16. ETANERCEPT [Concomitant]
     Active Substance: ETANERCEPT
     Indication: Erythrodermic psoriasis
     Dosage: 50 MILLIGRAM, Q2W (INDUCTION DOSAGE)
     Route: 065

REACTIONS (12)
  - Cushing^s syndrome [Recovering/Resolving]
  - Renal failure [Unknown]
  - Hepatic enzyme increased [Recovering/Resolving]
  - Dyslipidaemia [Recovering/Resolving]
  - Psoriasis [Recovered/Resolved]
  - Drug ineffective [Unknown]
  - Treatment failure [Unknown]
  - Concomitant disease progression [Unknown]
  - Hypertension [Unknown]
  - Off label use [Unknown]
  - Therapeutic product effect decreased [Unknown]
  - Therapeutic product effect incomplete [Unknown]
